FAERS Safety Report 8483467-1 (Version None)
Quarter: 2012Q3

REPORT INFORMATION
  Report Type: 
  Country: None (occurrence: None)
  Receive Date: 20120702
  Receipt Date: 20120619
  Transmission Date: 20120928
  Serious: Yes (Other)
  Sender: FDA-Public Use
  Company Number: FR-FRI-1000027548

PATIENT
  Sex: Female
  Weight: 45 kg

DRUGS (9)
  1. CITALOPRAM HYDROBROMIDE [Suspect]
     Indication: BEHAVIOURAL AND PSYCHIATRIC SYMPTOMS OF DEMENTIA
     Dosage: 1 DF
     Route: 048
     Dates: start: 20111128, end: 20111202
  2. MEMANTINE HYDROCHLORIDE [Concomitant]
     Dosage: 20 MG
     Route: 048
     Dates: start: 20111128
  3. MEMANTINE HYDROCHLORIDE [Concomitant]
     Indication: DEMENTIA ALZHEIMER'S TYPE
     Route: 048
     Dates: start: 20090812, end: 20111128
  4. TERCIAN [Concomitant]
     Indication: AGITATION
     Dosage: 40 MG/ML
     Route: 048
     Dates: start: 20101022, end: 20111016
  5. EQUANIL [Concomitant]
     Indication: ANXIETY
     Dosage: 2 DF
     Route: 048
     Dates: start: 20100705, end: 20111017
  6. LAMOTRIGINE [Concomitant]
     Indication: CONVULSION
     Dosage: 75 MG
     Route: 048
     Dates: start: 20101227
  7. OXAZEPAM [Concomitant]
     Indication: AGITATION
  8. RISPERIDONE [Concomitant]
     Indication: AGITATION
     Dosage: 1 MG/ML
     Route: 048
     Dates: start: 20100408, end: 20111027
  9. IMOVANE [Concomitant]

REACTIONS (3)
  - LOSS OF CONSCIOUSNESS [None]
  - FALL [None]
  - ORTHOSTATIC HYPOTENSION [None]
